FAERS Safety Report 9970688 (Version 2)
Quarter: 2014Q1

REPORT INFORMATION
  Report Type: Report from Study
  Country: PR (occurrence: PR)
  Receive Date: 20140306
  Receipt Date: 20140306
  Transmission Date: 20141002
  Serious: No
  Sender: FDA-Public Use
  Company Number: PR-ABBVIE-13P-131-1131309-00

PATIENT
  Age: 52 Year
  Sex: Male
  Weight: 92.62 kg

DRUGS (5)
  1. HUMIRA [Suspect]
     Indication: PSORIATIC ARTHROPATHY
     Route: 058
     Dates: start: 20121102, end: 201305
  2. HUMIRA [Suspect]
     Route: 058
     Dates: start: 201308
  3. UNKNOWN MEDICATION [Concomitant]
     Indication: PSORIASIS
     Route: 061
  4. UNKNOWN MEDICATION [Concomitant]
     Indication: PSORIASIS
     Route: 061
  5. UNKNOWN MEDICATION [Concomitant]
     Indication: PSORIASIS
     Route: 061

REACTIONS (1)
  - Liver function test abnormal [Recovered/Resolved]
